FAERS Safety Report 8971567 (Version 1)
Quarter: 2012Q4

REPORT INFORMATION
  Report Type: 
  Country: US (occurrence: US)
  Receive Date: 20121217
  Receipt Date: 20121217
  Transmission Date: 20130627
  Serious: Yes (Life-Threatening, Hospitalization, Other)
  Sender: FDA-Public Use
  Company Number: US-ELI_LILLY_AND_COMPANY-US201201007361

PATIENT
  Sex: Male

DRUGS (10)
  1. BYETTA [Suspect]
     Dosage: UNK
     Dates: start: 200710, end: 201111
  2. NIFEDIPINE [Concomitant]
  3. METFORMIN [Concomitant]
  4. PRAVACHOL [Concomitant]
  5. ASPIRIN [Concomitant]
  6. FLUOXETINE [Concomitant]
  7. GLIMEPIRIDE [Concomitant]
  8. ATENOLOL [Concomitant]
  9. LISINOPRIL [Concomitant]
  10. HYDRALAZINE [Concomitant]

REACTIONS (5)
  - Respiratory failure [Unknown]
  - Convulsion [Unknown]
  - Diabetic ketoacidosis [Unknown]
  - Pancreatitis acute [Unknown]
  - Renal failure acute [Unknown]
